FAERS Safety Report 18838123 (Version 1)
Quarter: 2021Q1

REPORT INFORMATION
  Report Type: Spontaneous
  Country: US (occurrence: US)
  Receive Date: 20210203
  Receipt Date: 20210203
  Transmission Date: 20210419
  Serious: No
  Sender: FDA-Public Use
  Company Number: US-ALLERGAN-2023385US

PATIENT
  Age: 22 Year
  Sex: Female

DRUGS (13)
  1. CEVIMELINE HYDROCHLORIDE. [Concomitant]
     Active Substance: CEVIMELINE HYDROCHLORIDE
     Indication: DRY MOUTH
  2. HYDROXYCHLOROQUINE [Concomitant]
     Active Substance: HYDROXYCHLOROQUINE
  3. ZILEUTON. [Concomitant]
     Active Substance: ZILEUTON
  4. METHOTREXATE. [Concomitant]
     Active Substance: METHOTREXATE
     Route: 048
  5. CYCLOBENZAPRINE. [Concomitant]
     Active Substance: CYCLOBENZAPRINE
     Indication: PAIN
  6. FAMOTIDINE. [Concomitant]
     Active Substance: FAMOTIDINE
  7. RESTASIS [Concomitant]
     Active Substance: CYCLOSPORINE
     Indication: SJOGREN^S SYNDROME
     Route: 047
  8. FOLIC ACID. [Concomitant]
     Active Substance: FOLIC ACID
     Indication: VITAMIN SUPPLEMENTATION
  9. BOTOX [Suspect]
     Active Substance: ONABOTULINUMTOXINA
     Indication: PELVIC PAIN
     Dosage: 100 UNITS, SINGLE
     Dates: start: 201908, end: 201908
  10. XYZAL [Concomitant]
     Active Substance: LEVOCETIRIZINE DIHYDROCHLORIDE
  11. NORGESTIMATE AND ETHINYL ESTRADIOL [Concomitant]
     Active Substance: ETHINYL ESTRADIOL\NORGESTIMATE
     Indication: CONTRACEPTION
     Dosage: 0.02 MG, QD
     Route: 048
  12. DIAZEPAM. [Concomitant]
     Active Substance: DIAZEPAM
     Indication: PAIN
     Dosage: UNK, PRN
     Route: 048
  13. FEXOFENADINE [Concomitant]
     Active Substance: FEXOFENADINE HYDROCHLORIDE

REACTIONS (1)
  - Off label use [Unknown]

NARRATIVE: CASE EVENT DATE: 201908
